FAERS Safety Report 25476393 (Version 1)
Quarter: 2025Q2

REPORT INFORMATION
  Report Type: Spontaneous
  Country: US (occurrence: US)
  Receive Date: 20250625
  Receipt Date: 20250625
  Transmission Date: 20250716
  Serious: Yes (Hospitalization, Other)
  Sender: AMGEN
  Company Number: US-AMGEN-USASP2025122165

PATIENT

DRUGS (1)
  1. MVASI [Suspect]
     Active Substance: BEVACIZUMAB-AWWB
     Indication: Product used for unknown indication
     Route: 065

REACTIONS (5)
  - Fall [Unknown]
  - Mental status changes [Unknown]
  - Hypertransaminasaemia [Unknown]
  - Enterococcus test positive [Unknown]
  - Klebsiella test positive [Unknown]

NARRATIVE: CASE EVENT DATE: 20250401
